FAERS Safety Report 7963428-9 (Version None)
Quarter: 2011Q4

REPORT INFORMATION
  Report Type: 
  Country: None (occurrence: None)
  Receive Date: 20111205
  Receipt Date: 20111107
  Transmission Date: 20120403
  Serious: No
  Sender: FDA-Public Use
  Company Number: 2011CP000162

PATIENT
  Age: 44 Year
  Sex: Female

DRUGS (3)
  1. TETRAZEPAM [Concomitant]
  2. LYRICA [Concomitant]
  3. ACETAMINOPHEN [Suspect]
     Indication: PAIN
     Dosage: IV
     Route: 042
     Dates: start: 20111004, end: 20110101

REACTIONS (9)
  - MALAISE [None]
  - PAIN [None]
  - PARAESTHESIA [None]
  - DIZZINESS [None]
  - HOT FLUSH [None]
  - HYPERHIDROSIS [None]
  - PRODUCT QUALITY ISSUE [None]
  - INFUSION RELATED REACTION [None]
  - TACHYCARDIA [None]
